FAERS Safety Report 9289931 (Version 2)
Quarter: 2013Q4

REPORT INFORMATION
  Report Type: Spontaneous
  Country: US (occurrence: US)
  Receive Date: 20130515
  Receipt Date: 20131203
  Transmission Date: 20140711
  Serious: Yes (Hospitalization)
  Sender: FDA-Public Use
  Company Number: US-BAYER-2013-059732

PATIENT
  Age: 19 Year
  Sex: Female
  Weight: 47.62 kg

DRUGS (1)
  1. YAZ [Suspect]
     Indication: CONTRACEPTION
     Dosage: UNK
     Dates: start: 200803, end: 201010

REACTIONS (9)
  - Deep vein thrombosis [None]
  - General physical health deterioration [None]
  - Emotional distress [None]
  - Anxiety [None]
  - Pain [None]
  - Injury [None]
  - Pain [None]
  - Oedema peripheral [None]
  - Mental disorder [None]
